FAERS Safety Report 25970594 (Version 1)
Quarter: 2025Q4

REPORT INFORMATION
  Report Type: Spontaneous
  Country: US (occurrence: None)
  Receive Date: 20251028
  Receipt Date: 20251028
  Transmission Date: 20260117
  Serious: No
  Sender: FDA-CTU
  Company Number: None

PATIENT
  Age: 70 Year
  Sex: Male

DRUGS (1)
  1. NIFEDIPINE [Suspect]
     Active Substance: NIFEDIPINE

REACTIONS (4)
  - Therapy interrupted [None]
  - Hypotension [None]
  - Renal disorder [None]
  - Hemiparesis [None]

NARRATIVE: CASE EVENT DATE: 20251027
